FAERS Safety Report 8885985 (Version 1)
Quarter: 2012Q4

REPORT INFORMATION
  Report Type: 
  Country: US (occurrence: US)
  Receive Date: 20121105
  Receipt Date: 20121105
  Transmission Date: 20130627
  Serious: Yes (Other)
  Sender: FDA-Public Use
  Company Number: US-BAYER-2012-114732

PATIENT
  Age: 57 Year

DRUGS (1)
  1. GADAVIST [Suspect]
     Indication: MRI BRAIN
     Dosage: 9 ml, ONCE
     Dates: start: 20121029, end: 20121029

REACTIONS (4)
  - Urticaria [None]
  - Nasal congestion [None]
  - Pharyngeal oedema [None]
  - Dyspnoea [None]
